FAERS Safety Report 23039206 (Version 1)
Quarter: 2023Q4

REPORT INFORMATION
  Report Type: Other
  Country: NL (occurrence: NL)
  Receive Date: 20231006
  Receipt Date: 20231006
  Transmission Date: 20240110
  Serious: Yes (Other)
  Sender: FDA-Public Use
  Company Number: NL-PFIZER INC-PV202300155772

PATIENT
  Age: 31 Year
  Sex: Female

DRUGS (3)
  1. TRASTUZUMAB [Suspect]
     Active Substance: TRASTUZUMAB
     Indication: Product used for unknown indication
     Dosage: 14 3X WEEKLY TREATMENTS
     Route: 065
  2. TRASTUZUMAB [Suspect]
     Active Substance: TRASTUZUMAB
     Dosage: FOR 12 WEEKS
     Route: 065
  3. PACLITAXEL [Suspect]
     Active Substance: PACLITAXEL
     Indication: Breast cancer
     Dosage: FOR 12 WEEKS
     Route: 065

REACTIONS (6)
  - Device related infection [Unknown]
  - Vomiting [Unknown]
  - Renal impairment [Unknown]
  - Pancytopenia [Unknown]
  - Nausea [Unknown]
  - Hypocalcaemia [Unknown]
